FAERS Safety Report 6517678-9 (Version None)
Quarter: 2009Q4

REPORT INFORMATION
  Report Type: 
  Country: None (occurrence: None)
  Receive Date: 20091224
  Receipt Date: 20091216
  Transmission Date: 20100525
  Serious: Yes (Death)
  Sender: FDA-Public Use
  Company Number: CH-WYE-H12736209

PATIENT
  Age: 82 Year
  Sex: Female

DRUGS (14)
  1. PANTOPRAZOLE [Suspect]
     Route: 048
     Dates: end: 20091202
  2. SORTIS ^GOEDECKE^ [Suspect]
     Indication: HYPERCHOLESTEROLAEMIA
     Route: 048
     Dates: end: 20091202
  3. ALDACTONE [Suspect]
     Indication: ESSENTIAL HYPERTENSION
     Route: 048
     Dates: end: 20091124
  4. AXURA [Suspect]
     Indication: DEMENTIA ALZHEIMER'S TYPE
     Route: 048
     Dates: start: 20091125, end: 20091202
  5. DAFALGAN [Suspect]
     Route: 048
     Dates: start: 20091127, end: 20091129
  6. AUGMENTIN [Concomitant]
     Dosage: UNKNOWN
     Route: 042
     Dates: start: 20091201
  7. ACETYLSALICYLIC ACID [Concomitant]
     Dosage: UNKNOWN
     Route: 048
  8. BUDENOFALK [Concomitant]
     Dosage: UNKNOWN
     Route: 048
  9. TORSEMIDE [Concomitant]
     Route: 048
  10. VITARUBIN [Concomitant]
     Route: 048
     Dates: start: 20091123
  11. FRAGMIN [Concomitant]
     Route: 058
     Dates: start: 20091123, end: 20091128
  12. SEROQUEL [Suspect]
     Indication: RESTLESSNESS
     Route: 048
     Dates: start: 20091123, end: 20091202
  13. SEROQUEL [Suspect]
     Indication: AGITATION
  14. METOPROLOL TARTRATE [Suspect]
     Indication: ESSENTIAL HYPERTENSION
     Route: 048
     Dates: start: 20091128

REACTIONS (4)
  - DRUG TOXICITY [None]
  - HEPATOCELLULAR INJURY [None]
  - INTERNATIONAL NORMALISED RATIO INCREASED [None]
  - RESPIRATORY DISORDER [None]
